FAERS Safety Report 20160168 (Version 1)
Quarter: 2021Q4

REPORT INFORMATION
  Report Type: Spontaneous
  Country: US (occurrence: None)
  Receive Date: 20211207
  Receipt Date: 20211207
  Transmission Date: 20220303
  Serious: Yes (Hospitalization)
  Sender: FDA-Public Use
  Company Number: None

PATIENT
  Sex: Female

DRUGS (5)
  1. HYDROXYCHLOROQUINE [Suspect]
     Active Substance: HYDROXYCHLOROQUINE
     Indication: Systemic lupus erythematosus
     Dosage: FREQUENCY : TWICE A DAY;?
     Route: 048
     Dates: start: 20201026
  2. CALCIUM-DOCUSATE [Concomitant]
  3. SOD-LAMICTAL [Concomitant]
  4. PROBIOTIC-VITAMIN D3 [Concomitant]
  5. PROBIOTIC-VITAMIN D3 [Concomitant]

REACTIONS (2)
  - Hospitalisation [None]
  - Therapy interrupted [None]
